FAERS Safety Report 15999442 (Version 14)
Quarter: 2019Q2

REPORT INFORMATION
  Report Type: Spontaneous
  Country: US (occurrence: US)
  Receive Date: 20190225
  Receipt Date: 20190628
  Transmission Date: 20190711
  Serious: Yes (Hospitalization, Other)
  Sender: FDA-Public Use
  Company Number: US-PFIZER INC-2019080291

PATIENT
  Age: 82 Year
  Sex: Female

DRUGS (10)
  1. GLIMEPIRIDE. [Concomitant]
     Active Substance: GLIMEPIRIDE
     Dosage: 4 MG, 1X/DAY
     Dates: start: 1998
  2. LISINOPRIL. [Concomitant]
     Active Substance: LISINOPRIL
     Dosage: 10 MG, 1X/DAY
     Dates: start: 1998
  3. LYRICA [Suspect]
     Active Substance: PREGABALIN
     Dosage: 150 MG, 1X/DAY
     Route: 048
  4. METFORMIN [Concomitant]
     Active Substance: METFORMIN HYDROCHLORIDE
     Dosage: 850 MG, 3X/DAY
     Dates: start: 1998
  5. LYRICA [Suspect]
     Active Substance: PREGABALIN
     Indication: NEUROPATHY PERIPHERAL
     Dosage: 150 MG, DAILY
     Route: 048
  6. NADOLOL. [Concomitant]
     Active Substance: NADOLOL
     Dosage: 40 MG, 1X/DAY
     Dates: start: 1997
  7. LYRICA [Suspect]
     Active Substance: PREGABALIN
     Dosage: 150 MG, EVERY 2 DAYS
     Route: 048
  8. LYRICA [Suspect]
     Active Substance: PREGABALIN
     Indication: PAIN IN EXTREMITY
     Dosage: 150 MG, EVERY OTHER DAY
     Route: 048
  9. LYRICA [Suspect]
     Active Substance: PREGABALIN
     Dosage: UNK
  10. LOVASTATIN. [Concomitant]
     Active Substance: LOVASTATIN
     Dosage: 10 MG, 1X/DAY
     Dates: start: 1998

REACTIONS (12)
  - Drug dependence [Unknown]
  - Intentional product misuse [Unknown]
  - Tooth abscess [Unknown]
  - Incontinence [Recovered/Resolved]
  - Insomnia [Recovered/Resolved]
  - Cerebrovascular accident [Unknown]
  - Palpitations [Recovered/Resolved]
  - Alopecia [Unknown]
  - Restlessness [Recovered/Resolved]
  - Heart rate increased [Recovered/Resolved]
  - Emotional disorder [Unknown]
  - Stress [Unknown]
